FAERS Safety Report 19768725 (Version 1)
Quarter: 2021Q3

REPORT INFORMATION
  Report Type: Spontaneous
  Country: NL (occurrence: NL)
  Receive Date: 20210831
  Receipt Date: 20210831
  Transmission Date: 20211014
  Serious: Yes (Other)
  Sender: FDA-Public Use
  Company Number: NL-MICRO LABS LIMITED-ML2021-02173

PATIENT
  Age: 71 Year
  Sex: Male

DRUGS (5)
  1. BIO ACTIVE RED YEAST EXTRACT 315MG [Suspect]
     Active Substance: DIETARY SUPPLEMENT
  2. HYDROCHLOROTHIAZIDE. [Concomitant]
     Active Substance: HYDROCHLOROTHIAZIDE
  3. TELMISARTAN (ANDA 207016) [Suspect]
     Active Substance: TELMISARTAN
  4. DICLOFENAC [Concomitant]
     Active Substance: DICLOFENAC
  5. OMEPRAZOLE. [Concomitant]
     Active Substance: OMEPRAZOLE

REACTIONS (6)
  - Abdominal pain [Recovered/Resolved]
  - Rhabdomyolysis [Recovered/Resolved]
  - Drug interaction [Unknown]
  - Chromaturia [Recovered/Resolved]
  - Malaise [Recovered/Resolved]
  - Nausea [Recovered/Resolved]
